FAERS Safety Report 12811872 (Version 1)
Quarter: 2016Q4

REPORT INFORMATION
  Report Type: Spontaneous
  Country: US (occurrence: US)
  Receive Date: 20161005
  Receipt Date: 20161005
  Transmission Date: 20170207
  Serious: No
  Sender: FDA-Public Use
  Company Number: US-AMGEN-USASP2016061575

PATIENT
  Age: 83 Year
  Sex: Female

DRUGS (1)
  1. PROLIA [Suspect]
     Active Substance: DENOSUMAB
     Indication: OSTEOPOROSIS
     Dosage: UNK UNK, UNK
     Route: 065

REACTIONS (5)
  - Dental caries [Unknown]
  - Artificial crown procedure [Unknown]
  - Anaemia [Unknown]
  - Gingival recession [Unknown]
  - Platelet count abnormal [Unknown]
